FAERS Safety Report 15155957 (Version 1)
Quarter: 2018Q3

REPORT INFORMATION
  Report Type: Spontaneous
  Country: NL (occurrence: NL)
  Receive Date: 20180717
  Receipt Date: 20180717
  Transmission Date: 20181010
  Serious: Yes (Disabling)
  Sender: FDA-Public Use
  Company Number: NL-US WORLDMEDS, LLC-STA_00020089

PATIENT
  Sex: Female

DRUGS (1)
  1. APOMORPHINE HYDROCHLORIDE [Suspect]
     Active Substance: APOMORPHINE HYDROCHLORIDE
     Indication: PARKINSON^S DISEASE
     Dosage: FROM 08 AM UNTIL 05 PM, FLOW 2 0.54 ML/HOUR (2.7 MG/HOUR) FROM 05 PM ?08 AM, BOLUS 0.02 (0.10 MG)
     Route: 058
     Dates: start: 20110317

REACTIONS (2)
  - Hip fracture [Not Recovered/Not Resolved]
  - Fall [Not Recovered/Not Resolved]
